FAERS Safety Report 6354625-7 (Version None)
Quarter: 2009Q3

REPORT INFORMATION
  Report Type: 
  Country: None (occurrence: None)
  Receive Date: 20090914
  Receipt Date: 20090903
  Transmission Date: 20100115
  Serious: Yes (Death)
  Sender: FDA-Public Use
  Company Number: GB-ELI_LILLY_AND_COMPANY-GB200909000803

PATIENT
  Age: 20 Year
  Sex: Male

DRUGS (2)
  1. PROZAC [Suspect]
     Dosage: 20 MG, UNK
     Dates: start: 20090101
  2. PROZAC [Suspect]
     Dosage: 40 MG, EACH MORNING
     Dates: start: 20090101

REACTIONS (1)
  - COMPLETED SUICIDE [None]
